FAERS Safety Report 5594149-8 (Version None)
Quarter: 2008Q1

REPORT INFORMATION
  Report Type: 
  Country: None (occurrence: None)
  Receive Date: 20080116
  Receipt Date: 20080109
  Transmission Date: 20080703
  Serious: Yes (Hospitalization, Other)
  Sender: FDA-Public Use
  Company Number: US-PFIZER INC-2008003119

PATIENT
  Sex: Male
  Weight: 84.8 kg

DRUGS (5)
  1. VIAGRA [Suspect]
     Indication: ERECTILE DYSFUNCTION
     Dates: start: 20041001, end: 20041001
  2. GLYBURIDE [Concomitant]
  3. NEXIUM [Concomitant]
  4. METFORMIN HCL [Concomitant]
  5. ZESTRIL [Concomitant]

REACTIONS (5)
  - DEAFNESS [None]
  - DRUG INEFFECTIVE [None]
  - EAR DISCOMFORT [None]
  - FLUSHING [None]
  - TINNITUS [None]
